FAERS Safety Report 17731132 (Version 2)
Quarter: 2020Q2

REPORT INFORMATION
  Report Type: Spontaneous
  Country: NL (occurrence: NL)
  Receive Date: 20200430
  Receipt Date: 20200505
  Transmission Date: 20200714
  Serious: Yes (Hospitalization)
  Sender: FDA-Public Use
  Company Number: NVSC2020NL114839

PATIENT
  Sex: Male

DRUGS (1)
  1. HYDROCHLOROTHIAZIDE. [Suspect]
     Active Substance: HYDROCHLOROTHIAZIDE
     Indication: HYPERTENSION
     Dosage: UNK, DECREASED
     Route: 065
     Dates: start: 20161215

REACTIONS (5)
  - Pain [Unknown]
  - Abdominal hernia [Unknown]
  - Myocardial infarction [Unknown]
  - Telangiectasia [Unknown]
  - Tinnitus [Unknown]

NARRATIVE: CASE EVENT DATE: 20170109
